FAERS Safety Report 21173177 (Version 1)
Quarter: 2022Q3

REPORT INFORMATION
  Report Type: Spontaneous
  Country: US (occurrence: None)
  Receive Date: 20220804
  Receipt Date: 20220804
  Transmission Date: 20221027
  Serious: Yes (Other)
  Sender: FDA-Public Use
  Company Number: US-ROCHE-3152657

PATIENT
  Sex: Female
  Weight: 65.830 kg

DRUGS (2)
  1. ACTEMRA [Suspect]
     Active Substance: TOCILIZUMAB
     Indication: Rheumatoid arthritis
     Route: 042
     Dates: start: 20220707
  2. PREDNISONE [Concomitant]
     Active Substance: PREDNISONE

REACTIONS (6)
  - Hallucination, visual [Unknown]
  - Metamorphopsia [Unknown]
  - Pain [Unknown]
  - Cataract [Unknown]
  - Eye abrasion [Unknown]
  - Visual impairment [Unknown]
